FAERS Safety Report 8608078-6 (Version None)
Quarter: 2012Q3

REPORT INFORMATION
  Report Type: 
  Country: None (occurrence: None)
  Receive Date: 20120821
  Receipt Date: 20120814
  Transmission Date: 20120928
  Serious: Yes (Other)
  Sender: FDA-Public Use
  Company Number: PHHY2012BR071207

PATIENT
  Sex: Female

DRUGS (3)
  1. ADALAT [Concomitant]
     Dosage: UNK UKN, UNK
  2. ATENOLOL [Concomitant]
     Dosage: 1 DF (320/12.5 MG), DAILY
  3. DIOVAN HCT [Suspect]
     Indication: HYPERTENSION
     Dosage: 1 TABLET (320/12.5 MG), QD

REACTIONS (2)
  - BLOOD PRESSURE INADEQUATELY CONTROLLED [None]
  - CAROTID ARTERY OCCLUSION [None]
